FAERS Safety Report 8582888 (Version 2)
Quarter: 2012Q4

REPORT INFORMATION
  Report Type: 
  Country: CA (occurrence: CA)
  Receive Date: 20120529
  Receipt Date: 20121226
  Transmission Date: 20130627
  Serious: Yes (Death, Hospitalization)
  Sender: FDA-Public Use
  Company Number: CA-JNJFOC-20120515365

PATIENT
  Sex: Male
  Weight: 80 kg

DRUGS (5)
  1. REMICADE [Suspect]
     Indication: CROHN^S DISEASE
     Route: 042
  2. REMICADE [Suspect]
     Indication: CROHN^S DISEASE
     Route: 042
     Dates: start: 201004
  3. REMICADE [Suspect]
     Indication: CROHN^S DISEASE
     Route: 042
     Dates: start: 201205
  4. COVERSYL [Concomitant]
     Route: 048
  5. APO-SALVENT [Concomitant]
     Dosage: 1-2 puffs four time daily as needed
     Route: 055

REACTIONS (3)
  - Amyotrophic lateral sclerosis [Fatal]
  - Respiratory failure [Fatal]
  - Lung neoplasm malignant [Not Recovered/Not Resolved]
